FAERS Safety Report 8686548 (Version 4)
Quarter: 2014Q3

REPORT INFORMATION
  Report Type: Spontaneous
  Country: US (occurrence: US)
  Receive Date: 20120726
  Receipt Date: 20140827
  Transmission Date: 20150326
  Serious: Yes (Other)
  Sender: FDA-Public Use
  Company Number: US-009507513-2011SP000809

PATIENT
  Sex: Female
  Weight: 75.75 kg

DRUGS (2)
  1. NUVARING [Suspect]
     Active Substance: ETHINYL ESTRADIOL\ETONOGESTREL
     Indication: CONTRACEPTION
     Dosage: UNK
     Dates: start: 2007
  2. NUVARING [Suspect]
     Active Substance: ETHINYL ESTRADIOL\ETONOGESTREL
     Dosage: UNK
     Dates: start: 200809, end: 200901

REACTIONS (10)
  - Uterine spasm [Unknown]
  - Pulmonary embolism [Unknown]
  - Oropharyngeal pain [Unknown]
  - Foot fracture [Unknown]
  - Chest pain [Unknown]
  - Abortion spontaneous [Recovered/Resolved]
  - Back pain [Unknown]
  - Viral infection [Unknown]
  - Sinusitis [Unknown]
  - Abdominal pain [Unknown]

NARRATIVE: CASE EVENT DATE: 20070109
